FAERS Safety Report 24315904 (Version 1)
Quarter: 2024Q3

REPORT INFORMATION
  Report Type: Spontaneous
  Country: AU (occurrence: AU)
  Receive Date: 20240913
  Receipt Date: 20240913
  Transmission Date: 20241017
  Serious: Yes (Other)
  Sender: RANBAXY
  Company Number: AU-SUN PHARMACEUTICAL INDUSTRIES LTD-2024R1-467162

PATIENT

DRUGS (3)
  1. LAMOTRIGINE [Suspect]
     Active Substance: LAMOTRIGINE
     Indication: Product used for unknown indication
     Dosage: 200 MILLIGRAM
     Route: 048
  2. SERTRALINE [Suspect]
     Active Substance: SERTRALINE HYDROCHLORIDE
     Indication: Product used for unknown indication
     Dosage: 900 MILLIGRAM
     Route: 048
  3. ORPHENADRINE [Suspect]
     Active Substance: ORPHENADRINE
     Indication: Product used for unknown indication
     Dosage: 700 MILLIGRAM
     Route: 048

REACTIONS (3)
  - Intentional overdose [Unknown]
  - Poisoning deliberate [Unknown]
  - Tachycardia [Unknown]
